FAERS Safety Report 19356296 (Version 1)
Quarter: 2021Q2

REPORT INFORMATION
  Report Type: Spontaneous
  Country: US (occurrence: US)
  Receive Date: 20210601
  Receipt Date: 20210601
  Transmission Date: 20210717
  Serious: Yes (Hospitalization)
  Sender: FDA-Public Use
  Company Number: None

PATIENT
  Sex: Female

DRUGS (31)
  1. ADVIL [Concomitant]
     Active Substance: IBUPROFEN
  2. MONTELUKAST [Concomitant]
     Active Substance: MONTELUKAST SODIUM
  3. PREDNISONE. [Concomitant]
     Active Substance: PREDNISONE
  4. VENLAFAXINE ER [Concomitant]
     Active Substance: VENLAFAXINE HYDROCHLORIDE
  5. NO DRUG NAME [Concomitant]
  6. LEVETIRACETA [Concomitant]
     Active Substance: LEVETIRACETAM
  7. ALBUTEROL HFA [Concomitant]
     Active Substance: ALBUTEROL SULFATE
  8. FOLIC ACID. [Concomitant]
     Active Substance: FOLIC ACID
  9. OXYCODONE [Concomitant]
     Active Substance: OXYCODONE
  10. CENTRUM [Concomitant]
     Active Substance: VITAMINS
  11. COLCHICINE. [Concomitant]
     Active Substance: COLCHICINE
  12. DILTIAZEM ER [Concomitant]
     Active Substance: DILTIAZEM
  13. DIAZEPAM. [Concomitant]
     Active Substance: DIAZEPAM
  14. FLUCONAZOLE. [Concomitant]
     Active Substance: FLUCONAZOLE
  15. HYDROMORPHON [Concomitant]
     Active Substance: HYDROMORPHONE
  16. TOPROL XL [Concomitant]
     Active Substance: METOPROLOL SUCCINATE
  17. AMBRISENTAN 10MG TAB [Suspect]
     Active Substance: AMBRISENTAN
     Indication: PULMONARY ARTERIAL HYPERTENSION
     Route: 048
     Dates: start: 20210122
  18. FENTANYL. [Concomitant]
     Active Substance: FENTANYL
  19. LORAZEPAM. [Concomitant]
     Active Substance: LORAZEPAM
  20. KEFLEX [Concomitant]
     Active Substance: CEPHALEXIN
  21. LANSOPRAZOLE DR [Concomitant]
     Active Substance: LANSOPRAZOLE
  22. MORPHINE SULF [Concomitant]
     Active Substance: MORPHINE SULFATE
  23. POT CHLORIDE ER [Concomitant]
  24. PROMETHAZINE [Concomitant]
     Active Substance: PROMETHAZINE HYDROCHLORIDE
  25. ASPIRIN EC [Concomitant]
     Active Substance: ASPIRIN
  26. ATORVASTATIN [Concomitant]
     Active Substance: ATORVASTATIN
  27. ELIQUIS [Concomitant]
     Active Substance: APIXABAN
  28. LATANOPROST. [Concomitant]
     Active Substance: LATANOPROST
  29. NORVASC [Concomitant]
     Active Substance: AMLODIPINE BESYLATE
  30. TRAZODONE [Concomitant]
     Active Substance: TRAZODONE HYDROCHLORIDE
  31. TYLENOL [Concomitant]
     Active Substance: ACETAMINOPHEN

REACTIONS (1)
  - Dyspnoea [None]
